FAERS Safety Report 9865284 (Version 2)
Quarter: 2014Q1

REPORT INFORMATION
  Report Type: Spontaneous
  Country: US (occurrence: US)
  Receive Date: 20140203
  Receipt Date: 20140203
  Transmission Date: 20141002
  Serious: No
  Sender: FDA-Public Use
  Company Number: US-ALLERGAN-1300452US

PATIENT
  Age: 64 Year
  Sex: Female

DRUGS (2)
  1. RESTASIS [Suspect]
     Indication: DRY EYE
     Dosage: 2 UNK, BID
     Route: 047
     Dates: start: 201212
  2. OTC EYE DROP [Concomitant]
     Indication: DRY EYE

REACTIONS (3)
  - Burning sensation [Unknown]
  - Vision blurred [Unknown]
  - Eye pain [Unknown]
